FAERS Safety Report 25808179 (Version 1)
Quarter: 2025Q3

REPORT INFORMATION
  Report Type: Spontaneous
  Country: CA (occurrence: CA)
  Receive Date: 20250916
  Receipt Date: 20250916
  Transmission Date: 20251020
  Serious: Yes (Other)
  Sender: MYLAN
  Company Number: CA-MYLANLABS-2025M1078279

PATIENT
  Age: 68 Year
  Sex: Male

DRUGS (5)
  1. GABAPENTIN [Interacting]
     Active Substance: GABAPENTIN
     Indication: Arthralgia
     Dosage: 300 MILLIGRAM, TID (3 EVERY 1 DAYS)
  2. OXYCODONE [Interacting]
     Active Substance: OXYCODONE
     Indication: Arthralgia
     Dosage: 5 MILLIGRAM, TID (3 EVERY 1 DAYS)
  3. LAMOTRIGINE [Concomitant]
     Active Substance: LAMOTRIGINE
  4. LITHIUM [Concomitant]
     Active Substance: LITHIUM
  5. QUETIAPINE [Concomitant]
     Active Substance: QUETIAPINE

REACTIONS (4)
  - Serotonin syndrome [Unknown]
  - Tremor [Unknown]
  - Peripheral swelling [Unknown]
  - Drug interaction [Unknown]
